FAERS Safety Report 6733802-7 (Version None)
Quarter: 2010Q2

REPORT INFORMATION
  Report Type: 
  Country: None (occurrence: None)
  Receive Date: 20100520
  Receipt Date: 20100513
  Transmission Date: 20101027
  Serious: Yes (Other)
  Sender: FDA-Public Use
  Company Number: US-RB-004645-10

PATIENT
  Age: 23 Year
  Sex: Female

DRUGS (5)
  1. SUBOXONE [Suspect]
     Indication: DRUG USE FOR UNKNOWN INDICATION
     Dosage: DOSING DETAILS UNKNOWN
     Route: 065
  2. DEPO-PROVERA [Suspect]
     Indication: DRUG USE FOR UNKNOWN INDICATION
     Dosage: UNKNOWN DOSING DETAILS
     Route: 065
  3. KLONOPIN [Suspect]
     Indication: DRUG USE FOR UNKNOWN INDICATION
     Dosage: UNKNOWN DOSING DETAILS
     Route: 065
  4. KLONOPIN [Suspect]
     Dosage: UNKNOWN DOSING DETAILS
     Route: 065
  5. HYDROCODONE [Suspect]
     Indication: DRUG USE FOR UNKNOWN INDICATION
     Dosage: UNKNOWN DOSING  DETAILS
     Route: 065

REACTIONS (10)
  - BACK PAIN [None]
  - DRUG WITHDRAWAL SYNDROME [None]
  - HEADACHE [None]
  - MALAISE [None]
  - NASOPHARYNGITIS [None]
  - OVARIAN CYST [None]
  - OVERDOSE [None]
  - PAIN [None]
  - ROAD TRAFFIC ACCIDENT [None]
  - SUICIDAL IDEATION [None]
